FAERS Safety Report 4384831-2 (Version None)
Quarter: 2004Q2

REPORT INFORMATION
  Report Type: 
  Country: None (occurrence: None)
  Receive Date: 20040623
  Receipt Date: 20040617
  Transmission Date: 20050107
  Serious: No
  Sender: FDA-Public Use
  Company Number: 8237

PATIENT
  Age: 12 Year
  Sex: Male

DRUGS (1)
  1. ACYCLOVIR [Suspect]
     Dosage: IV
     Route: 042

REACTIONS (3)
  - BLOOD CREATININE INCREASED [None]
  - BLOOD UREA INCREASED [None]
  - NEPHRITIS INTERSTITIAL [None]
